FAERS Safety Report 9014032 (Version 1)
Quarter: 2013Q1

REPORT INFORMATION
  Report Type: Spontaneous
  Country: US (occurrence: None)
  Receive Date: 20130109
  Receipt Date: 20130109
  Transmission Date: 20140127
  Serious: Yes (Other)
  Sender: FDA-Public Use
  Company Number: None

PATIENT
  Age: 58 Year
  Sex: Male

DRUGS (2)
  1. PEGASYS [Suspect]
     Route: 058
     Dates: start: 20120726
  2. RIBAVIRIN [Suspect]
     Route: 048
     Dates: start: 20120726

REACTIONS (3)
  - Dyspnoea [None]
  - Presyncope [None]
  - Blood count abnormal [None]
